FAERS Safety Report 4518092-8 (Version None)
Quarter: 2004Q4

REPORT INFORMATION
  Report Type: 
  Country: None (occurrence: None)
  Receive Date: 20041130
  Receipt Date: 20041117
  Transmission Date: 20050328
  Serious: Yes (Other)
  Sender: FDA-Public Use
  Company Number: 2004095236

PATIENT

DRUGS (9)
  1. NEURONTIN [Suspect]
     Indication: PAIN
     Dosage: 900 MG (300 MG, 3 IN 1 D)
  2. ZOLPIDEM TARTRATE (ZOLPIDEM TARTRATE0 [Suspect]
     Indication: SOMNOLENCE
     Dosage: (10 MG)
  3. ESTROGENS CONJUGTED (ESTROGENS CONJUGATED) [Suspect]
     Indication: ILL-DEFINED DISORDER
     Dosage: (0.625 MG)
  4. VENLAFAXINE HYDROCHLROIDE 9VENLAFAXINE HYDROCHLORIDE) [Suspect]
     Indication: DEPRESSION
     Dosage: (300 MG)
  5. OXYCODONE HYDROCHLORIDE AND ACETAMINOPHEN [Suspect]
     Indication: PAIN
     Dosage: (6 IN 1 D)
  6. HYDROYZINE HYDROCHLORIDE (HYDROXYZINE HYDROCHLORIDE) [Suspect]
     Indication: PAIN
     Dosage: (25 MG, 1 IN 1 D)
  7. TRAZODONE HCL [Suspect]
     Indication: PAIN
     Dosage: (100 MG, 1 IN 1D)
  8. MAGNESIUM (MAGNESIUM) [Suspect]
     Indication: ILL-DEFINED DISORDER
     Dosage: (400 MG)
  9. VITAMINS (VITAMINS) [Suspect]
     Indication: ILL-DEFINED DISORDER

REACTIONS (9)
  - CROHN'S DISEASE [None]
  - DRY EYE [None]
  - DYSARTHRIA [None]
  - FEELING COLD [None]
  - FIBROMYALGIA [None]
  - GENERAL PHYSICAL HEALTH DETERIORATION [None]
  - NIGHTMARE [None]
  - PAIN [None]
  - SINUS DISORDER [None]
